FAERS Safety Report 6175465-8 (Version None)
Quarter: 2009Q2

REPORT INFORMATION
  Report Type: 
  Country: None (occurrence: None)
  Receive Date: 20090430
  Receipt Date: 20090422
  Transmission Date: 20091009
  Serious: Yes (Other)
  Sender: FDA-Public Use
  Company Number: JP-SANOFI-SYNTHELABO-A01200904407

PATIENT
  Age: 15 Year
  Sex: Female

DRUGS (2)
  1. MYSLEE [Concomitant]
     Indication: INSOMNIA
     Route: 048
  2. MYSLEE [Suspect]
     Indication: INTENTIONAL OVERDOSE
     Dosage: 6 OR MORE TABLETS ONCE
     Route: 048
     Dates: start: 20090422, end: 20090422

REACTIONS (2)
  - DELIRIUM [None]
  - INTENTIONAL OVERDOSE [None]
